FAERS Safety Report 10108620 (Version 1)
Quarter: 2014Q2

REPORT INFORMATION
  Report Type: Spontaneous
  Country: FR (occurrence: FR)
  Receive Date: 20140425
  Receipt Date: 20140425
  Transmission Date: 20141212
  Serious: Yes (Hospitalization)
  Sender: FDA-Public Use
  Company Number: FR-009507513-1404FRA009382

PATIENT
  Age: 48 Year
  Sex: Female

DRUGS (6)
  1. EMEND [Suspect]
     Indication: PRODUCT USED FOR UNKNOWN INDICATION
     Dosage: 125 MG, QD
     Route: 048
     Dates: start: 20140219
  2. ENDOXAN [Concomitant]
     Dosage: 846 MG, ONCE
     Route: 042
     Dates: start: 20140219, end: 20140219
  3. FLUOROURACIL PFIZER [Concomitant]
     Dosage: 845 MG, ONCE
     Route: 042
     Dates: start: 20140219, end: 20140219
  4. EPIRUBICIN HYDROCHLORIDE [Concomitant]
     Dosage: 169 MG, ONCE
     Route: 042
     Dates: start: 20140219, end: 20140219
  5. METHYLPREDNISOLONE MYLAN [Concomitant]
     Dosage: 60 MG, ONCE
     Route: 042
     Dates: start: 20140219, end: 20140219
  6. ONDANSETRON [Concomitant]
     Dosage: 8 MG, QD
     Route: 048
     Dates: start: 20140219

REACTIONS (2)
  - Coma [Recovered/Resolved]
  - Hyponatraemia [Recovered/Resolved]
